FAERS Safety Report 8475356-3 (Version None)
Quarter: 2012Q2

REPORT INFORMATION
  Report Type: 
  Country: None (occurrence: None)
  Receive Date: 20120628
  Receipt Date: 20120618
  Transmission Date: 20120825
  Serious: Yes (Other)
  Sender: FDA-Public Use
  Company Number: US-JNJFOC-20120609364

PATIENT
  Sex: Female

DRUGS (15)
  1. MIRALAX [Concomitant]
     Route: 065
  2. KLONOPIN [Concomitant]
     Indication: PRODUCT USED FOR UNKNOWN INDICATION
     Route: 065
  3. LASIX [Concomitant]
     Route: 065
  4. FISH OIL [Concomitant]
     Route: 065
  5. PRAVACHOL [Concomitant]
     Dosage: 20
     Route: 065
  6. PREVACID [Concomitant]
     Route: 065
  7. NEURONTIN [Concomitant]
     Route: 065
  8. TOPAMAX [Suspect]
     Indication: PRODUCT USED FOR UNKNOWN INDICATION
     Route: 048
  9. GEODON [Suspect]
     Indication: PRODUCT USED FOR UNKNOWN INDICATION
     Route: 065
  10. LITHIUM CARBONATE [Suspect]
     Indication: PRODUCT USED FOR UNKNOWN INDICATION
     Route: 065
  11. THORAZINE [Suspect]
     Indication: MENTAL DISORDER
     Route: 065
     Dates: start: 20120401, end: 20120101
  12. CYMBALTA [Suspect]
     Indication: PRODUCT USED FOR UNKNOWN INDICATION
     Route: 065
  13. SYNTHROID [Concomitant]
     Route: 065
  14. ALLOPURINOL [Concomitant]
     Route: 065
  15. LISINOPRIL [Concomitant]
     Dosage: 20/25
     Route: 065

REACTIONS (7)
  - THINKING ABNORMAL [None]
  - MENTAL DISORDER [None]
  - ADVERSE EVENT [None]
  - DYSARTHRIA [None]
  - ASTHENIA [None]
  - HYPOAESTHESIA [None]
  - DYSPNOEA [None]
